FAERS Safety Report 7682235-8 (Version None)
Quarter: 2011Q3

REPORT INFORMATION
  Report Type: 
  Country: None (occurrence: None)
  Receive Date: 20110815
  Receipt Date: 20110802
  Transmission Date: 20111222
  Serious: No
  Sender: FDA-Public Use
  Company Number: DE-UCBSA-037932

PATIENT
  Age: 76 Year
  Sex: Male

DRUGS (1)
  1. KEPPRA [Suspect]
     Dosage: VIA STOMACH TUBE; DOSE INCREASED

REACTIONS (1)
  - THROMBOCYTOPENIA [None]
